FAERS Safety Report 5512822-4 (Version None)
Quarter: 2007Q4

REPORT INFORMATION
  Report Type: 
  Country: None (occurrence: None)
  Receive Date: 20071108
  Receipt Date: 20071108
  Transmission Date: 20080405
  Serious: Yes (Hospitalization)
  Sender: FDA-Public Use
  Company Number: None

PATIENT
  Sex: Male

DRUGS (11)
  1. LAMICTAL [Suspect]
     Indication: DEMENTIA
     Dosage: 1 TABLET WITH BREAKFAST PO
     Route: 048
  2. ADVAIR DISKUS 100/50 [Concomitant]
  3. ALPRAZOLAM [Concomitant]
  4. ARICEPT [Concomitant]
  5. ASPIRIN [Concomitant]
  6. VICODIN [Concomitant]
  7. LANTUS [Concomitant]
  8. LISINOPRIL [Concomitant]
  9. SENNA S [Concomitant]
  10. SPIRIVA [Concomitant]
  11. TRAZODONE HCL [Concomitant]

REACTIONS (1)
  - RASH [None]
